FAERS Safety Report 24764334 (Version 1)
Quarter: 2024Q4

REPORT INFORMATION
  Report Type: Report from Study
  Country: US (occurrence: US)
  Receive Date: 20241223
  Receipt Date: 20241223
  Transmission Date: 20250115
  Serious: Yes (Other)
  Sender: ABBVIE
  Company Number: US-ABBVIE-6056520

PATIENT
  Sex: Female

DRUGS (2)
  1. BOTOX [Suspect]
     Active Substance: ONABOTULINUMTOXINA
     Indication: Idiopathic intracranial hypertension
     Dosage: TIME INTERVAL: AS NECESSARY
     Route: 065
  2. BOTOX [Suspect]
     Active Substance: ONABOTULINUMTOXINA
     Indication: Idiopathic intracranial hypertension
     Dosage: TIME INTERVAL: AS NECESSARY
     Route: 065
     Dates: start: 20241213, end: 20241213

REACTIONS (3)
  - Loss of consciousness [Unknown]
  - Blood pressure increased [Unknown]
  - Tremor [Unknown]
